FAERS Safety Report 12072412 (Version 1)
Quarter: 2016Q1

REPORT INFORMATION
  Report Type: Report from Study
  Country: US (occurrence: US)
  Receive Date: 20160212
  Receipt Date: 20160212
  Transmission Date: 20160526
  Serious: Yes (Hospitalization, Other)
  Sender: FDA-Public Use
  Company Number: US-ASTELLAS-2016US004790

PATIENT
  Age: 60 Year

DRUGS (3)
  1. BEVACIZUMAB [Suspect]
     Active Substance: BEVACIZUMAB
     Indication: PANCREATIC CARCINOMA
     Dosage: 10 MG/M2, CYCLIC (ON DAYS 1 AND 15 FOR CYCLE 1 AND 2 )
     Route: 042
     Dates: start: 20060830, end: 20060912
  2. GEMCITABINE [Suspect]
     Active Substance: GEMCITABINE\GEMCITABINE HYDROCHLORIDE
     Indication: PANCREATIC CARCINOMA
     Dosage: 1000 MG/M2, CYCLIC (OVER 30 MINUTES ON DAYS 1, 8, 15 FOR CYCLE 1 AND 2)
     Route: 042
     Dates: start: 20060830, end: 20060912
  3. ERLOTINIB [Suspect]
     Active Substance: ERLOTINIB
     Indication: PANCREATIC CARCINOMA
     Dosage: 150 MG, ONCE DAILY (CYCLE 1 AND 2, ON DAYS 1 TO 5, 8 TO 12 AND 15 TO 26)
     Route: 048
     Dates: start: 20060830, end: 20060912

REACTIONS (5)
  - Thrombotic microangiopathy [Unknown]
  - Proteinuria [Unknown]
  - Blood creatinine increased [Unknown]
  - Malignant neoplasm progression [Unknown]
  - Cholangitis [Recovered/Resolved]

NARRATIVE: CASE EVENT DATE: 20060912
